FAERS Safety Report 18963000 (Version 3)
Quarter: 2022Q1

REPORT INFORMATION
  Report Type: Spontaneous
  Country: CA (occurrence: CA)
  Receive Date: 20210303
  Receipt Date: 20220321
  Transmission Date: 20220423
  Serious: Yes (Congenital Anomaly)
  Sender: FDA-Public Use
  Company Number: CA-JNJFOC-20210248302

PATIENT
  Age: 6 Month
  Sex: Female
  Weight: 3 kg

DRUGS (15)
  1. CONCERTA [Suspect]
     Active Substance: METHYLPHENIDATE HYDROCHLORIDE
     Indication: Attention deficit hyperactivity disorder
     Route: 064
  2. CONCERTA [Suspect]
     Active Substance: METHYLPHENIDATE HYDROCHLORIDE
     Route: 063
  3. CYCLOBENZAPRINE [Suspect]
     Active Substance: CYCLOBENZAPRINE
     Indication: Product used for unknown indication
     Route: 064
  4. DOCUSATE SODIUM [Suspect]
     Active Substance: DOCUSATE SODIUM
     Indication: Product used for unknown indication
     Route: 064
  5. DOCUSATE SODIUM [Suspect]
     Active Substance: DOCUSATE SODIUM
     Route: 063
  6. DOMPERIDONE [Suspect]
     Active Substance: DOMPERIDONE
     Indication: Lactation disorder
     Route: 064
  7. DULOXETINE [Suspect]
     Active Substance: DULOXETINE
     Indication: Attention deficit hyperactivity disorder
     Route: 064
  8. DULOXETINE [Suspect]
     Active Substance: DULOXETINE
     Route: 064
  9. DULOXETINE [Suspect]
     Active Substance: DULOXETINE
     Route: 063
  10. INSULIN NOS [Suspect]
     Active Substance: INSULIN NOS
     Indication: Product used for unknown indication
     Route: 064
  11. FERROUS SULFATE ANHYDROUS [Suspect]
     Active Substance: FERROUS SULFATE ANHYDROUS
     Indication: Product used for unknown indication
     Route: 064
  12. LEVOTHYROXINE [Suspect]
     Active Substance: LEVOTHYROXINE
     Indication: Product used for unknown indication
     Route: 064
  13. OMEPRAZOLE MAGNESIUM [Suspect]
     Active Substance: OMEPRAZOLE MAGNESIUM
     Indication: Product used for unknown indication
     Route: 064
  14. URSODIOL [Suspect]
     Active Substance: URSODIOL
     Indication: Product used for unknown indication
     Route: 064
  15. URSODIOL [Suspect]
     Active Substance: URSODIOL
     Indication: Product used for unknown indication
     Route: 064

REACTIONS (8)
  - Foetal exposure during pregnancy [Unknown]
  - Exposure via breast milk [Unknown]
  - Lung cyst [Unknown]
  - Pneumonia [Unknown]
  - Pulmonary malformation [Unknown]
  - Respiratory tract malformation [Unknown]
  - Poor sucking reflex [Unknown]
  - Somnolence [Unknown]
